FAERS Safety Report 4788877-1 (Version None)
Quarter: 2005Q4

REPORT INFORMATION
  Report Type: 
  Country: None (occurrence: None)
  Receive Date: 20051005
  Receipt Date: 20050927
  Transmission Date: 20060501
  Serious: Yes (Hospitalization)
  Sender: FDA-Public Use
  Company Number: PHBS2005JP14267

PATIENT
  Age: 62 Year
  Sex: Male

DRUGS (5)
  1. DIOVAN [Suspect]
     Indication: HYPERTENSION
     Dosage: 80 MG/DAY
     Route: 048
     Dates: end: 20050825
  2. BEZATOL - SLOW RELEASE [Concomitant]
     Dosage: 800 MG/DAY
     Route: 048
  3. PROHEPARUM [Concomitant]
     Route: 048
     Dates: end: 20050825
  4. MUCOSOLVAN [Concomitant]
     Dosage: 45 MG/DAY
     Route: 048
  5. LYSOZYME HYDROCHLORIDE [Concomitant]
     Dosage: 90 MG/DAY
     Route: 048
     Dates: end: 20050825

REACTIONS (4)
  - DYSPNOEA [None]
  - HYPOXIA [None]
  - INTERSTITIAL LUNG DISEASE [None]
  - PRODUCTIVE COUGH [None]
